FAERS Safety Report 8214574-6 (Version None)
Quarter: 2012Q1

REPORT INFORMATION
  Report Type: 
  Country: None (occurrence: None)
  Receive Date: 20120316
  Receipt Date: 20120305
  Transmission Date: 20120608
  Serious: Yes (Other)
  Sender: FDA-Public Use
  Company Number: US-ELI_LILLY_AND_COMPANY-US201002004208

PATIENT
  Sex: Female

DRUGS (4)
  1. FORTEO [Suspect]
     Dosage: 20 UG, QD
     Route: 065
     Dates: end: 20120219
  2. FORTEO [Suspect]
     Dosage: 20 UG, QD
     Route: 065
  3. LEVOTHYROXINE SODIUM [Concomitant]
     Indication: THYROID THERAPY
  4. FORTEO [Suspect]
     Indication: OSTEOPOROSIS
     Dosage: 20 UG, QD
     Dates: start: 20100207

REACTIONS (12)
  - FEAR [None]
  - DRUG DOSE OMISSION [None]
  - SWELLING FACE [None]
  - RESPIRATORY TRACT CONGESTION [None]
  - STENT PLACEMENT [None]
  - CONSTIPATION [None]
  - PALLOR [None]
  - DRUG HYPERSENSITIVITY [None]
  - HIP SURGERY [None]
  - NASOPHARYNGITIS [None]
  - HAEMORRHOIDAL HAEMORRHAGE [None]
  - COUGH [None]
